FAERS Safety Report 19481623 (Version 1)
Quarter: 2021Q2

REPORT INFORMATION
  Report Type: Spontaneous
  Country: US (occurrence: US)
  Receive Date: 20210630
  Receipt Date: 20210630
  Transmission Date: 20210717
  Serious: Yes (Other)
  Sender: FDA-Public Use
  Company Number: None

PATIENT
  Age: 31 Year
  Sex: Female
  Weight: 124.1 kg

DRUGS (1)
  1. KESIMPTA [Suspect]
     Active Substance: OFATUMUMAB
     Dates: start: 20210625

REACTIONS (3)
  - Asthenia [None]
  - Influenza like illness [None]
  - Herpes zoster [None]

NARRATIVE: CASE EVENT DATE: 20210625
